FAERS Safety Report 6210048 (Version 4)
Quarter: 2020Q3

REPORT INFORMATION
  Report Type: Report from Study
  Country: US (occurrence: US)
  Receive Date: 20070108
  Receipt Date: 20200406
  Transmission Date: 20201104
  Serious: Yes (Death, Hospitalization)
  Sender: FDA-Public Use
  Company Number: US-JNJFOC-20070101051

PATIENT
  Age: 28 Year
  Sex: Male
  Weight: 36.4 kg

DRUGS (17)
  1. CISAPRIDE [Suspect]
     Active Substance: CISAPRIDE
     Indication: GASTROOESOPHAGEAL REFLUX DISEASE
     Route: 048
     Dates: start: 20010221, end: 20061225
  2. DIAZEPAM. [Concomitant]
     Active Substance: DIAZEPAM
     Indication: INSOMNIA
     Dosage: Q PM
     Dates: end: 20061225
  3. LISINOPRIL. [Concomitant]
     Active Substance: LISINOPRIL
     Route: 048
     Dates: start: 20051122, end: 20060315
  4. GAS?X [Concomitant]
     Active Substance: DIMETHICONE
     Indication: GASTROOESOPHAGEAL REFLUX DISEASE
     Dates: end: 20061225
  5. LISINOPRIL. [Concomitant]
     Active Substance: LISINOPRIL
     Route: 048
     Dates: start: 20060316, end: 20060926
  6. TEGRETOL [Concomitant]
     Active Substance: CARBAMAZEPINE
     Dosage: AT BEDTIME
     Dates: end: 20061225
  7. NALEX?A [Concomitant]
     Active Substance: CHLORPHENIRAMINE\PHENYLEPHRINE\PHENYLTOLOXAMINE
     Indication: PULMONARY CONGESTION
     Dates: start: 200211, end: 20061225
  8. TOPROL XL [Concomitant]
     Active Substance: METOPROLOL SUCCINATE
     Indication: HYPERTENSION
     Dates: start: 20060927, end: 20061225
  9. CLARITIN [Concomitant]
     Active Substance: LORATADINE
     Indication: SINUSITIS
     Dates: end: 20061225
  10. BENADRYL [Concomitant]
     Active Substance: DIPHENHYDRAMINE HYDROCHLORIDE
     Indication: SINUSITIS
     Dates: end: 20061225
  11. PEPCID [Concomitant]
     Active Substance: FAMOTIDINE
     Indication: GASTROOESOPHAGEAL REFLUX DISEASE
     Dates: start: 20010726, end: 20061225
  12. TEGRETOL [Concomitant]
     Active Substance: CARBAMAZEPINE
     Indication: SEIZURE
     Dosage: Q AM
     Dates: end: 20061225
  13. TEGRETOL [Concomitant]
     Active Substance: CARBAMAZEPINE
     Dosage: Q PM
     Dates: end: 20061225
  14. DIAZEPAM. [Concomitant]
     Active Substance: DIAZEPAM
     Dosage: AT BEDTIME
     Dates: end: 20061225
  15. SODIUM CHLORIDE. [Concomitant]
     Active Substance: SODIUM CHLORIDE
     Indication: HYPONATRAEMIA
     Dates: start: 20020706, end: 20061225
  16. LISINOPRIL. [Concomitant]
     Active Substance: LISINOPRIL
     Indication: HYPERTENSION
     Route: 048
     Dates: start: 20050624, end: 20051121
  17. LISINOPRIL. [Concomitant]
     Active Substance: LISINOPRIL
     Route: 048
     Dates: start: 20060927, end: 20061225

REACTIONS (2)
  - Brain injury [Fatal]
  - Cardio-respiratory arrest [Recovered/Resolved]

NARRATIVE: CASE EVENT DATE: 20061226
